FAERS Safety Report 13856472 (Version 1)
Quarter: 2017Q3

REPORT INFORMATION
  Report Type: Spontaneous
  Country: US (occurrence: US)
  Receive Date: 20170810
  Receipt Date: 20170810
  Transmission Date: 20171127
  Serious: Yes (Other)
  Sender: FDA-Public Use
  Company Number: US-LUNDBECK-DKLU2035370

PATIENT
  Age: 36 Year
  Sex: Female

DRUGS (4)
  1. NORTHERA [Suspect]
     Active Substance: DROXIDOPA
     Dosage: SCHEDULE B; TITRATING
     Route: 065
     Dates: start: 20170715
  2. NORTHERA [Suspect]
     Active Substance: DROXIDOPA
     Indication: AUTONOMIC NEUROPATHY
     Dosage: SCHEDULE B; TITRATING
     Route: 065
     Dates: start: 20170705
  3. FLUDROCORTISONE [Concomitant]
     Active Substance: FLUDROCORTISONE
     Indication: PRODUCT USED FOR UNKNOWN INDICATION
     Route: 065
  4. NORTHERA [Suspect]
     Active Substance: DROXIDOPA
     Dosage: SCHEDULE B; TITRATING
     Route: 048
     Dates: end: 20170714

REACTIONS (8)
  - Migraine [Recovering/Resolving]
  - Diarrhoea [Recovering/Resolving]
  - Ovulation pain [Unknown]
  - Dizziness [Recovering/Resolving]
  - Shock [Unknown]
  - Nausea [Not Recovered/Not Resolved]
  - Hypotension [Recovering/Resolving]
  - Vomiting [Recovering/Resolving]

NARRATIVE: CASE EVENT DATE: 20170706
